FAERS Safety Report 4875801-6 (Version None)
Quarter: 2006Q1

REPORT INFORMATION
  Report Type: 
  Country: None (occurrence: None)
  Receive Date: 20060106
  Receipt Date: 20051229
  Transmission Date: 20060701
  Serious: Yes (Hospitalization)
  Sender: FDA-Public Use
  Company Number: 163-20785-05080030

PATIENT
  Age: 68 Year
  Sex: Male

DRUGS (1)
  1. THALOMID [Suspect]
     Indication: OESOPHAGEAL CARCINOMA
     Dosage: 100 MG DAILY ORAL
     Route: 048
     Dates: start: 20050101

REACTIONS (5)
  - ASTHENIA [None]
  - DISEASE PROGRESSION [None]
  - NAUSEA [None]
  - OXYGEN SATURATION DECREASED [None]
  - VOMITING [None]
